FAERS Safety Report 11004861 (Version 1)
Quarter: 2015Q2

REPORT INFORMATION
  Report Type: Spontaneous
  Country: US (occurrence: None)
  Receive Date: 20150408
  Receipt Date: 20150408
  Transmission Date: 20150821
  Serious: Yes (Hospitalization)
  Sender: FDA-Public Use
  Company Number: None

PATIENT
  Age: 64 Year
  Sex: Female
  Weight: 95.26 kg

DRUGS (9)
  1. MULTIVITAMINS [Concomitant]
     Active Substance: VITAMINS
  2. AZULFADINE [Concomitant]
  3. PRADAXA [Suspect]
     Active Substance: DABIGATRAN ETEXILATE MESYLATE
     Indication: ATRIAL FIBRILLATION
     Route: 048
     Dates: start: 20080812, end: 20150331
  4. TOPROLOL LA [Concomitant]
  5. PRADAXA [Suspect]
     Active Substance: DABIGATRAN ETEXILATE MESYLATE
     Route: 048
     Dates: start: 20080812, end: 20150331
  6. ENALAPRIL [Concomitant]
     Active Substance: ENALAPRIL
  7. VERAPAMIL LA [Concomitant]
  8. FOLIC ACID. [Concomitant]
     Active Substance: FOLIC ACID
  9. ULTIMATE OMEGA [Concomitant]

REACTIONS (3)
  - Blood pressure increased [None]
  - Hyperhidrosis [None]
  - Cerebrovascular accident [None]

NARRATIVE: CASE EVENT DATE: 20150331
